FAERS Safety Report 11124653 (Version 2)
Quarter: 2015Q2

REPORT INFORMATION
  Report Type: Spontaneous
  Country: GB (occurrence: GB)
  Receive Date: 20150520
  Receipt Date: 20150521
  Transmission Date: 20150821
  Serious: Yes (Hospitalization, Other)
  Sender: FDA-Public Use
  Company Number: GB-TEVA-562802ACC

PATIENT
  Age: 45 Year
  Sex: Male

DRUGS (7)
  1. CISPLATIN. [Suspect]
     Active Substance: CISPLATIN
     Indication: OESOPHAGEAL ADENOCARCINOMA
     Dosage: CYCLE 1, DATE OF MOST RECENT ADMINISTRATION: 02 JULY 2009.
     Route: 042
     Dates: start: 20090702
  2. AVASTIN [Suspect]
     Active Substance: BEVACIZUMAB
     Indication: OESOPHAGEAL ADENOCARCINOMA
     Dosage: CYCLE 1, DATE OF MOST RECENT ADMINISTRATION: 02 JULY 2009.
     Route: 042
  3. XELODA [Suspect]
     Active Substance: CAPECITABINE
     Indication: OESOPHAGEAL ADENOCARCINOMA
     Dosage: CYCLE 1, DATE OF MOST RECENT ADMINISTRATION: 02 JULY 2009.
     Route: 048
  4. LANSOPRAZOLE. [Concomitant]
     Active Substance: LANSOPRAZOLE
     Route: 048
  5. EPIRUBICIN [Suspect]
     Active Substance: EPIRUBICIN
     Indication: OESOPHAGEAL ADENOCARCINOMA
     Dosage: CYCLE 1, DATE OF MOST RECENT ADMINISTRATION: 02 JULY 2009.
     Route: 042
     Dates: start: 20090702
  6. DEXAMETHASONE. [Concomitant]
     Active Substance: DEXAMETHASONE
     Route: 048
     Dates: start: 20090703, end: 20090705
  7. METOCLOPRAMIDE. [Concomitant]
     Active Substance: METOCLOPRAMIDE
     Route: 048
     Dates: start: 20090702, end: 20090707

REACTIONS (5)
  - Nausea [Unknown]
  - Chest pain [Unknown]
  - Dysphagia [Unknown]
  - Vomiting [Unknown]
  - Dehydration [Not Recovered/Not Resolved]

NARRATIVE: CASE EVENT DATE: 20090709
